FAERS Safety Report 9508199 (Version 1)
Quarter: 2013Q3

REPORT INFORMATION
  Report Type: Spontaneous
  Country: US (occurrence: US)
  Receive Date: 20130909
  Receipt Date: 20130909
  Transmission Date: 20140515
  Serious: No
  Sender: FDA-Public Use
  Company Number: US-PFIZER INC-2013258466

PATIENT
  Age: 42 Year
  Sex: Male
  Weight: 78.46 kg

DRUGS (1)
  1. LYRICA [Suspect]
     Indication: SCIATICA
     Dosage: UNK

REACTIONS (2)
  - Skin disorder [Unknown]
  - Scar [Unknown]
